FAERS Safety Report 4499551-3 (Version None)
Quarter: 2004Q4

REPORT INFORMATION
  Report Type: 
  Country: None (occurrence: None)
  Receive Date: 20040928
  Receipt Date: 20040810
  Transmission Date: 20050328
  Serious: No
  Sender: FDA-Public Use
  Company Number: 04P-163-0270170-00

PATIENT
  Age: 47 Year
  Sex: Female
  Weight: 80.7403 kg

DRUGS (9)
  1. HUMIRA [Suspect]
     Indication: RHEUMATOID ARTHRITIS
     Dosage: 40 MG, 1 IN 2 WK, SUBCUTANEOUS
     Route: 058
     Dates: start: 20040501
  2. MESALAMINE [Concomitant]
  3. SERTRALINE HYDROCHLORIDE [Concomitant]
  4. TIRIAZODONE [Concomitant]
  5. FENOFIBRATE [Concomitant]
  6. FEXOFENADINE HYDROCHLORIDE [Concomitant]
  7. FLUTICASONE PROPIONATE [Concomitant]
  8. MULTI-VITAMINS [Concomitant]
  9. HYDROCODONE [Concomitant]

REACTIONS (1)
  - INJECTION SITE BURNING [None]
